FAERS Safety Report 13960932 (Version 2)
Quarter: 2017Q4

REPORT INFORMATION
  Report Type: Spontaneous
  Country: DE (occurrence: DE)
  Receive Date: 20170912
  Receipt Date: 20171003
  Transmission Date: 20180320
  Serious: Yes (Hospitalization, Other)
  Sender: FDA-Public Use
  Company Number: DE-ASTRAZENECA-2017SE91722

PATIENT
  Age: 78 Year
  Sex: Female

DRUGS (5)
  1. VIANI FORTE [Concomitant]
     Active Substance: FLUTICASONE PROPIONATE\SALMETEROL XINAFOATE
  2. THEOPHYLLINE [Suspect]
     Active Substance: THEOPHYLLINE ANHYDROUS
     Route: 065
  3. PULMICORT TURBUHALER [Suspect]
     Active Substance: BUDESONIDE
     Route: 055
  4. SINGULAIR [Concomitant]
     Active Substance: MONTELUKAST SODIUM
  5. SALBUTAMOL [Concomitant]
     Active Substance: ALBUTEROL
     Dosage: IF NEEDED

REACTIONS (10)
  - Chronic obstructive pulmonary disease [Unknown]
  - Colon cancer [Unknown]
  - Essential hypertension [Unknown]
  - Infection [Unknown]
  - Depression [Unknown]
  - Hypercholesterolaemia [Unknown]
  - Osteoporosis [Unknown]
  - Type 2 diabetes mellitus [Unknown]
  - Presbyacusis [Unknown]
  - Senile dementia [Unknown]

NARRATIVE: CASE EVENT DATE: 201403
